FAERS Safety Report 14655729 (Version 4)
Quarter: 2018Q3

REPORT INFORMATION
  Report Type: Spontaneous
  Country: FR (occurrence: FR)
  Receive Date: 20180319
  Receipt Date: 20180914
  Transmission Date: 20181010
  Serious: Yes (Hospitalization, Other)
  Sender: FDA-Public Use
  Company Number: FR-SA-2017SA163217

PATIENT
  Age: 61 Year
  Sex: Male
  Weight: 93 kg

DRUGS (11)
  1. DECTANCYL [Suspect]
     Active Substance: DEXAMETHASONE
     Indication: PROSTATE CANCER METASTATIC
     Dosage: .5 MG,QD
     Route: 048
     Dates: start: 201502
  2. ZYTIGA [Concomitant]
     Active Substance: ABIRATERONE ACETATE
     Dosage: UNK UNK,UNK
     Route: 065
     Dates: start: 201309
  3. ELIGARD [Concomitant]
     Active Substance: LEUPROLIDE ACETATE
     Dosage: UNK
  4. ZOMETA [Concomitant]
     Active Substance: ZOLEDRONIC ACID
     Indication: BONE DISORDER
     Dosage: UNK UNK,UNK
     Route: 065
     Dates: start: 2012
  5. DOCETAXEL. [Concomitant]
     Active Substance: DOCETAXEL
     Dosage: UNK
  6. XGEVA [Suspect]
     Active Substance: DENOSUMAB
     Indication: PROSTATE CANCER METASTATIC
     Dosage: 120 MG,QM
     Route: 058
     Dates: start: 201309
  7. GONADORELIN [Suspect]
     Active Substance: GONADORELIN
     Indication: PROSTATE CANCER METASTATIC
     Dosage: 11.25 MG,UNK
     Route: 030
     Dates: start: 201209
  8. XTANDI [Suspect]
     Active Substance: ENZALUTAMIDE
     Indication: PROSTATE CANCER METASTATIC
     Dosage: 4 DF,QD
     Route: 048
     Dates: start: 201601
  9. XOFIGO [Suspect]
     Active Substance: RADIUM RA-223 DICHLORIDE
     Indication: PROSTATE CANCER METASTATIC
     Dosage: 1 DF,QCY
     Route: 042
     Dates: start: 201612, end: 20170502
  10. CABAZITAXEL [Suspect]
     Active Substance: CABAZITAXEL
     Indication: PROSTATE CANCER METASTATIC
     Dosage: UNK UNK,UNK
     Route: 051
  11. CASODEX [Concomitant]
     Active Substance: BICALUTAMIDE
     Dosage: UNK

REACTIONS (14)
  - Hyphaema [Recovered/Resolved]
  - Prostatic specific antigen increased [Unknown]
  - Lymphadenopathy [Unknown]
  - Glaucoma [Unknown]
  - Hyphaema [Recovered/Resolved]
  - Vision blurred [Not Recovered/Not Resolved]
  - Malignant neoplasm progression [Unknown]
  - Central nervous system lesion [Unknown]
  - Cyclitis [Recovered/Resolved]
  - Intraocular pressure increased [Not Recovered/Not Resolved]
  - Pigmentary glaucoma [Unknown]
  - Lymphadenopathy [Unknown]
  - Abdominal lymphadenopathy [Unknown]
  - Iridocyclitis [Recovered/Resolved]

NARRATIVE: CASE EVENT DATE: 201601
